FAERS Safety Report 9995588 (Version 1)
Quarter: 2014Q1

REPORT INFORMATION
  Report Type: Spontaneous
  Country: ES (occurrence: None)
  Receive Date: 20140307
  Receipt Date: 20140307
  Transmission Date: 20141002
  Serious: Yes (Other)
  Sender: FDA-Public Use
  Company Number: 2014ES00175

PATIENT
  Age: 60 Year
  Sex: Male

DRUGS (2)
  1. CARBOPLATIN [Suspect]
     Indication: NEOPLASM
     Dosage: AUC OF 3 OR AUC OF 4, INTRAVENOUS?
     Route: 042
  2. PM00104 [Suspect]
     Indication: NEOPLASM
     Dosage: 2.0 MG/M2, 1-H IV INFUSION, INTRAVENOUS
     Route: 042

REACTIONS (2)
  - Ejection fraction decreased [None]
  - Neutropenia [None]
